FAERS Safety Report 7126481-0 (Version None)
Quarter: 2010Q4

REPORT INFORMATION
  Report Type: 
  Country: None (occurrence: None)
  Receive Date: 20101129
  Receipt Date: 20101115
  Transmission Date: 20110411
  Serious: Yes (Life-Threatening)
  Sender: FDA-Public Use
  Company Number: US-MYLANLABS-2010S1021279

PATIENT
  Age: 30 Year
  Sex: Female

DRUGS (3)
  1. AMIODARONE [Suspect]
     Indication: INTENTIONAL OVERDOSE
     Route: 065
  2. DILTIAZEM [Suspect]
     Indication: INTENTIONAL OVERDOSE
     Route: 065
  3. METOPROLOL [Suspect]
     Indication: INTENTIONAL OVERDOSE
     Route: 065

REACTIONS (5)
  - ANURIA [None]
  - CARDIOGENIC SHOCK [None]
  - CONFUSIONAL STATE [None]
  - HYPOTENSION [None]
  - INTENTIONAL OVERDOSE [None]
